FAERS Safety Report 4483834-7 (Version None)
Quarter: 2004Q4

REPORT INFORMATION
  Report Type: 
  Country: None (occurrence: None)
  Receive Date: 20041025
  Receipt Date: 20041015
  Transmission Date: 20050328
  Serious: Yes (Hospitalization)
  Sender: FDA-Public Use
  Company Number: PHFR2004GB03889

PATIENT
  Age: 12 Year
  Sex: Female

DRUGS (2)
  1. VOLTAREN [Suspect]
     Indication: ANALGESIC EFFECT
     Dosage: 50 MG, TID
     Route: 048
     Dates: start: 20040927, end: 20040928
  2. MORPHINE [Concomitant]
     Route: 051
     Dates: start: 20040927, end: 20040927

REACTIONS (7)
  - DYSKINESIA [None]
  - DYSPHAGIA [None]
  - EYE ROLLING [None]
  - GAZE PALSY [None]
  - LOCAL SWELLING [None]
  - MUSCLE SPASMS [None]
  - RASH MACULAR [None]
